FAERS Safety Report 17764448 (Version 1)
Quarter: 2020Q2

REPORT INFORMATION
  Report Type: Spontaneous
  Country: SA (occurrence: SA)
  Receive Date: 20200511
  Receipt Date: 20200511
  Transmission Date: 20200714
  Serious: Yes (Other)
  Sender: FDA-Public Use
  Company Number: SA-AMGEN-SAUSP2020074734

PATIENT
  Age: 55 Year
  Sex: Male
  Weight: 78 kg

DRUGS (8)
  1. LIPITOR [ATORVASTATIN] [Concomitant]
     Dosage: 80 MILLIGRAM, QD
     Dates: start: 201810
  2. PERINDOPRIL [Concomitant]
     Active Substance: PERINDOPRIL
     Dosage: 750 UNK, QD
     Dates: start: 201810
  3. ASA [Concomitant]
     Active Substance: ASPIRIN
     Dosage: 2.5 MILLIGRAM, QD
     Dates: start: 201810
  4. PLAVIX [Concomitant]
     Active Substance: CLOPIDOGREL BISULFATE
     Dosage: 2.5 MILLIGRAM, QD
     Dates: start: 201810
  5. BISOPROLOL [Concomitant]
     Active Substance: BISOPROLOL
     Dosage: 2.5 MILLIGRAM, QD
     Dates: start: 201810
  6. REPATHA [Suspect]
     Active Substance: EVOLOCUMAB
     Indication: BLOOD CHOLESTEROL ABNORMAL
     Dosage: 140 MILLIGRAM PER MILLILITRE
     Route: 058
     Dates: start: 20200422
  7. METFORMIN [Concomitant]
     Active Substance: METFORMIN HYDROCHLORIDE
     Dosage: 750 UNK, QD
     Dates: start: 201810
  8. CENTRUM SILVER [ASCORBIC ACID;BETACAROTENE;BIOTIN;CALCIUM;CHROMIUM;COL [Concomitant]
     Dosage: 80 MILLIGRAM, QD
     Dates: start: 201810

REACTIONS (5)
  - Erectile dysfunction [Not Recovered/Not Resolved]
  - Asthenia [Not Recovered/Not Resolved]
  - Pain [Not Recovered/Not Resolved]
  - Insomnia [Recovered/Resolved]
  - Fatigue [Not Recovered/Not Resolved]

NARRATIVE: CASE EVENT DATE: 20200426
